FAERS Safety Report 8275054-5 (Version None)
Quarter: 2012Q2

REPORT INFORMATION
  Report Type: 
  Country: None (occurrence: None)
  Receive Date: 20120411
  Receipt Date: 20120405
  Transmission Date: 20120825
  Serious: Yes (Other)
  Sender: FDA-Public Use
  Company Number: PHHO2012DE005447

PATIENT
  Sex: Male

DRUGS (11)
  1. IMATINIB MESYLATE [Suspect]
     Dosage: 600 MG, UNK
     Route: 048
     Dates: start: 20050607, end: 20050919
  2. METOPROLOL TARTRATE [Concomitant]
     Indication: ATRIAL FIBRILLATION
     Dosage: 95 MG, BID
     Dates: start: 19970101
  3. PHENPROCOUMON [Concomitant]
     Indication: ATRIAL FIBRILLATION
     Dosage: INR 2-3
     Dates: start: 19970101
  4. IMATINIB MESYLATE [Suspect]
     Dosage: 800 MG, BID
     Route: 048
     Dates: start: 20080212, end: 20120404
  5. ENALAPRIL MALEATE [Concomitant]
     Indication: LEFT VENTRICULAR DYSFUNCTION
  6. ENALAPRIL MALEATE [Concomitant]
     Indication: ATRIAL FIBRILLATION
     Dosage: 10 MG, QD
     Dates: start: 19970101
  7. FUROSEMIDE [Concomitant]
     Indication: PLEURAL EFFUSION
     Dosage: 40 MG, QD
     Dates: start: 20080301
  8. IMATINIB MESYLATE [Suspect]
     Dosage: 400 MG, UNK
     Route: 048
     Dates: start: 20050920, end: 20080211
  9. DIGOXIN [Concomitant]
     Indication: ATRIAL FIBRILLATION
     Dosage: 0.2 MG, QD
     Dates: start: 19970101
  10. IMATINIB MESYLATE [Suspect]
     Indication: CHRONIC MYELOID LEUKAEMIA
     Dosage: 400 MG, UNK
     Route: 048
     Dates: start: 20050309, end: 20050606
  11. OMEPRAZOLE [Concomitant]
     Indication: DYSPEPSIA
     Dosage: 20 MG, QD

REACTIONS (2)
  - TRICUSPID VALVE INCOMPETENCE [None]
  - PULMONARY HYPERTENSION [None]
